FAERS Safety Report 19950903 (Version 1)
Quarter: 2021Q4

REPORT INFORMATION
  Report Type: Report from Study
  Country: IT (occurrence: IT)
  Receive Date: 20211013
  Receipt Date: 20211013
  Transmission Date: 20220304
  Serious: Yes (Death)
  Sender: FDA-Public Use
  Company Number: IT-PFIZER INC-202101202941

PATIENT

DRUGS (3)
  1. CISPLATIN [Suspect]
     Active Substance: CISPLATIN
     Indication: Head and neck cancer
     Dosage: 75 MG/M2, CYCLIC (ON DAY 1)
  2. DOCETAXEL [Suspect]
     Active Substance: DOCETAXEL
     Indication: Head and neck cancer
     Dosage: 75 MG/M2, CYCLIC (EVERY 21 DAYS)
     Route: 042
  3. FLUOROURACIL [Suspect]
     Active Substance: FLUOROURACIL
     Indication: Head and neck cancer
     Dosage: 800 MG/M2, CYCLIC (FROM DAY 1 TO DAY 4, EVERY 21 DAYS)

REACTIONS (1)
  - Cerebrovascular accident [Fatal]
